FAERS Safety Report 9548421 (Version 1)
Quarter: 2013Q3

REPORT INFORMATION
  Report Type: Spontaneous
  Country: GB (occurrence: GB)
  Receive Date: 20130924
  Receipt Date: 20130924
  Transmission Date: 20140515
  Serious: Yes (Death)
  Sender: FDA-Public Use
  Company Number: GB-BAUSCH-BL-2013-005081

PATIENT
  Age: 52 Year
  Sex: Male

DRUGS (12)
  1. DEXAMETHASONE [Suspect]
     Indication: AMYLOIDOSIS
     Route: 048
     Dates: start: 20130705, end: 20130809
  2. BORTEZOMIB [Suspect]
     Indication: AMYLOIDOSIS
     Dosage: 1 WEEKS
     Route: 058
     Dates: start: 20130705, end: 20130809
  3. CYCLOPHOSPHAMIDE [Suspect]
     Indication: AMYLOIDOSIS
     Route: 048
     Dates: start: 20130705, end: 20130712
  4. ACICLOVIR [Concomitant]
  5. AMIODARONE [Concomitant]
  6. BUMETANIDE [Concomitant]
  7. CO-TRIMOXAZOLE [Concomitant]
  8. DILTIAZEM HYDROCHLORIDE [Concomitant]
  9. LANSOPRAZOLE [Concomitant]
  10. METOLAZONE [Concomitant]
  11. POTASSIUM CHLORIDE [Concomitant]
  12. ZOPICLONE [Concomitant]

REACTIONS (1)
  - Sudden death [Fatal]
